FAERS Safety Report 5205657-3 (Version None)
Quarter: 2007Q1

REPORT INFORMATION
  Report Type: 
  Country: None (occurrence: None)
  Receive Date: 20070105
  Receipt Date: 20070105
  Transmission Date: 20070707
  Serious: Yes (Hospitalization)
  Sender: FDA-Public Use
  Company Number: None

PATIENT
  Sex: Female
  Weight: 34.0198 kg

DRUGS (7)
  1. WARFARIN SODIUM [Suspect]
     Indication: PROPHYLAXIS
     Dosage: 5 MG PO QD
     Route: 048
     Dates: start: 20060301, end: 20060701
  2. WARFARIN SODIUM [Suspect]
     Indication: PULMONARY EMBOLISM
     Dosage: 5 MG PO QD
     Route: 048
     Dates: start: 20060301, end: 20060701
  3. BACLOFEN [Concomitant]
  4. GABAPENTIN [Concomitant]
  5. OXYCODONE ER [Concomitant]
  6. HYDROMORPHONE HCL [Concomitant]
  7. MIRTAZAPINE [Concomitant]

REACTIONS (5)
  - BLOOD ALBUMIN DECREASED [None]
  - BLOOD TEST ABNORMAL [None]
  - INADEQUATE DIET [None]
  - INTERNATIONAL NORMALISED RATIO INCREASED [None]
  - TREATMENT NONCOMPLIANCE [None]
